FAERS Safety Report 25019368 (Version 2)
Quarter: 2025Q3

REPORT INFORMATION
  Report Type: Spontaneous
  Country: US (occurrence: US)
  Receive Date: 20250227
  Receipt Date: 20250717
  Transmission Date: 20251020
  Serious: Yes (Hospitalization)
  Sender: ELI LILLY AND COMPANY
  Company Number: US-ELI_LILLY_AND_COMPANY-US202502016536

PATIENT
  Age: 57 Year
  Sex: Female
  Weight: 68 kg

DRUGS (11)
  1. MOUNJARO [Suspect]
     Active Substance: TIRZEPATIDE
     Indication: Weight control
     Route: 065
     Dates: start: 20220830, end: 20220913
  2. MOUNJARO [Suspect]
     Active Substance: TIRZEPATIDE
     Indication: Weight control
     Route: 065
     Dates: start: 20220830, end: 20220913
  3. MOUNJARO [Suspect]
     Active Substance: TIRZEPATIDE
     Indication: Weight control
     Route: 065
     Dates: start: 20220830, end: 20220913
  4. MOUNJARO [Suspect]
     Active Substance: TIRZEPATIDE
     Indication: Weight control
     Route: 065
     Dates: start: 20220830, end: 20220913
  5. MOUNJARO [Suspect]
     Active Substance: TIRZEPATIDE
     Indication: Weight control
     Dosage: 5 MG, WEEKLY (1/W)
     Route: 065
     Dates: start: 20220920, end: 20231220
  6. MOUNJARO [Suspect]
     Active Substance: TIRZEPATIDE
     Indication: Weight control
     Dosage: 5 MG, WEEKLY (1/W)
     Route: 065
     Dates: start: 20220920, end: 20231220
  7. MOUNJARO [Suspect]
     Active Substance: TIRZEPATIDE
     Indication: Weight control
     Dosage: 5 MG, WEEKLY (1/W)
     Route: 065
     Dates: start: 20220920, end: 20231220
  8. MOUNJARO [Suspect]
     Active Substance: TIRZEPATIDE
     Indication: Weight control
     Dosage: 5 MG, WEEKLY (1/W)
     Route: 065
     Dates: start: 20220920, end: 20231220
  9. ZOLOFT [Concomitant]
     Active Substance: SERTRALINE HYDROCHLORIDE
     Indication: General physical condition
     Dates: start: 20220101
  10. VALIUM [Concomitant]
     Active Substance: DIAZEPAM
     Indication: Sleep disorder
     Dates: start: 20220101
  11. SYNTHROID [Concomitant]
     Active Substance: LEVOTHYROXINE SODIUM
     Indication: Hypothyroidism
     Dates: start: 20220101

REACTIONS (7)
  - Nausea [Recovered/Resolved]
  - Vomiting [Recovered/Resolved]
  - Abdominal pain [Recovered/Resolved]
  - Diarrhoea [Recovered/Resolved]
  - Intestinal obstruction [Recovered/Resolved]
  - Ileus [Unknown]
  - Off label use [Unknown]

NARRATIVE: CASE EVENT DATE: 20230301
